FAERS Safety Report 9139369 (Version 1)
Quarter: 2013Q1

REPORT INFORMATION
  Report Type: Spontaneous
  Country: US (occurrence: None)
  Receive Date: 20130205
  Receipt Date: 20130205
  Transmission Date: 20140127
  Serious: Yes (Death)
  Sender: FDA-Public Use
  Company Number: DEP_00812_2013

PATIENT
  Age: 44 Year
  Sex: Female

DRUGS (8)
  1. GABAPENTIN [Suspect]
     Indication: PRODUCT USED FOR UNKNOWN INDICATION
     Dosage: (DF)
     Route: 048
  2. TRAMADOL [Suspect]
     Dosage: (DF)
     Route: 048
  3. QUETIAPINE [Suspect]
     Dosage: (DF)
     Route: 048
  4. DULOXETINE [Suspect]
     Dosage: (DF)
     Route: 048
  5. LISINOPRIL [Suspect]
     Dosage: (DF)
     Route: 048
  6. METAXALONE [Suspect]
     Dosage: (DF)
     Route: 048
  7. CYCLOBENZAPRINE [Suspect]
     Dosage: (DF)
     Route: 048
  8. ESZOPICLONE [Suspect]
     Dosage: (DF)
     Route: 048

REACTIONS (2)
  - Poisoning [None]
  - Completed suicide [None]
